FAERS Safety Report 10646086 (Version 1)
Quarter: 2014Q4

REPORT INFORMATION
  Report Type: Spontaneous
  Country: US (occurrence: None)
  Receive Date: 20141205
  Receipt Date: 20141205
  Transmission Date: 20150529
  Serious: Yes (Other)
  Sender: FDA-Public Use
  Company Number: 1000067012

PATIENT
  Age: 80 Year
  Sex: Female

DRUGS (4)
  1. METOPROLOL [Concomitant]
     Active Substance: METOPROLOL
  2. NAMENDA [Suspect]
     Active Substance: MEMANTINE HYDROCHLORIDE
     Route: 048
     Dates: start: 20140211, end: 201404
  3. LAXATIVE NOS [Suspect]
     Active Substance: UNSPECIFIED INGREDIENT
     Indication: DIARRHOEA
     Dates: start: 201404
  4. LAXATIVE NOS [Suspect]
     Active Substance: UNSPECIFIED INGREDIENT
     Indication: CONFUSIONAL STATE
     Dates: start: 201404

REACTIONS (2)
  - Diarrhoea [None]
  - Confusional state [None]

NARRATIVE: CASE EVENT DATE: 201404
